FAERS Safety Report 7484470-0 (Version None)
Quarter: 2011Q2

REPORT INFORMATION
  Report Type: 
  Country: None (occurrence: None)
  Receive Date: 20110516
  Receipt Date: 20110516
  Transmission Date: 20111010
  Serious: Yes (Other)
  Sender: FDA-Public Use
  Company Number: None

PATIENT
  Sex: Female
  Weight: 68.0396 kg

DRUGS (1)
  1. ARAVA [Suspect]
     Indication: RHEUMATOID ARTHRITIS
     Dosage: 10 MG DAILY PO
     Route: 048

REACTIONS (19)
  - BALANCE DISORDER [None]
  - POSITIVE ROMBERGISM [None]
  - MAJOR DEPRESSION [None]
  - DEMYELINATION [None]
  - NIGHT BLINDNESS [None]
  - SYPHILIS [None]
  - PERIODONTAL DISEASE [None]
  - BRONCHITIS [None]
  - PROTEIN C DECREASED [None]
  - VITAMIN B12 DEFICIENCY [None]
  - GAIT DISTURBANCE [None]
  - DYSCALCULIA [None]
  - HYPERLIPIDAEMIA [None]
  - NERVOUS SYSTEM DISORDER [None]
  - HEADACHE [None]
  - POST-TRAUMATIC STRESS DISORDER [None]
  - ANXIETY [None]
  - SYSTEMIC LUPUS ERYTHEMATOSUS [None]
  - AMNESIA [None]
